FAERS Safety Report 7313605-5 (Version None)
Quarter: 2011Q1

REPORT INFORMATION
  Report Type: 
  Country: None (occurrence: None)
  Receive Date: 20110225
  Receipt Date: 20110112
  Transmission Date: 20110831
  Serious: Yes (Other)
  Sender: FDA-Public Use
  Company Number: ES-JNJFOC-20110206084

PATIENT
  Age: 40 Year
  Sex: Female
  Weight: 65 kg

DRUGS (4)
  1. REMICADE [Suspect]
     Indication: PSORIASIS
     Route: 042
  2. REMICADE [Suspect]
     Dosage: 325 MG
     Route: 042
  3. REMICADE [Suspect]
     Dosage: 325 MG
     Route: 042
  4. REMICADE [Suspect]
     Route: 042

REACTIONS (1)
  - PSORIATIC ARTHROPATHY [None]
